FAERS Safety Report 6371510-5 (Version None)
Quarter: 2009Q3

REPORT INFORMATION
  Report Type: 
  Country: None (occurrence: None)
  Receive Date: 20090923
  Receipt Date: 20080506
  Transmission Date: 20100115
  Serious: Yes (Hospitalization)
  Sender: FDA-Public Use
  Company Number: US-ASTRAZENECA-2007UW16983

PATIENT
  Age: 9749 Day
  Sex: Female
  Weight: 95.3 kg

DRUGS (34)
  1. SEROQUEL [Suspect]
     Indication: BIPOLAR DISORDER
     Dosage: 100-200MG
     Route: 048
     Dates: start: 19990807, end: 20020319
  2. SEROQUEL [Suspect]
     Dosage: 25 MG-500 MG
     Route: 048
     Dates: start: 19990807
  3. SEROQUEL [Suspect]
     Dosage: 100-200MG
     Route: 048
     Dates: start: 20040101, end: 20060101
  4. ABILIFY (ARIPIPARAZOLE) [Concomitant]
     Dates: start: 20030101, end: 20040101
  5. RISPERDAL [Concomitant]
     Dates: start: 20000101
  6. RISPERDAL [Concomitant]
     Dates: start: 20020101
  7. RISPERDAL [Concomitant]
     Dates: start: 20050101
  8. THORAZINE [Concomitant]
     Dates: start: 20000101
  9. ZYPREXA /SYMBYAX (OLANZAPINE) [Concomitant]
     Dates: start: 20020101, end: 20030522
  10. LITHIUM [Concomitant]
     Dates: start: 20040101
  11. WELLBUTRIN [Concomitant]
     Dates: start: 20000101, end: 20020101
  12. LANTUS [Concomitant]
  13. LISINOPRIL [Concomitant]
  14. CIPRO [Concomitant]
  15. AMBIEN [Concomitant]
  16. IBUPROFEN [Concomitant]
  17. THIORIDAZINE HCL [Concomitant]
  18. ZOLOFT [Concomitant]
  19. ATIVAN [Concomitant]
  20. EFFEXOR [Concomitant]
  21. IMITREX [Concomitant]
  22. VICODIN [Concomitant]
  23. NICOTINE [Concomitant]
  24. SKELAXIN [Concomitant]
  25. PENICILLIN [Concomitant]
  26. ETODOLAC [Concomitant]
  27. NAPROXEN [Concomitant]
  28. NORFLEX [Concomitant]
  29. REMERON [Concomitant]
  30. CLONAZEPAM [Concomitant]
  31. AVANDIA [Concomitant]
  32. XANAX [Concomitant]
  33. PROPRANOLOL [Concomitant]
  34. LUNESTA [Concomitant]

REACTIONS (17)
  - ACUTE SINUSITIS [None]
  - ANXIETY [None]
  - ATTENTION DEFICIT/HYPERACTIVITY DISORDER [None]
  - BLOOD CHOLESTEROL INCREASED [None]
  - BRONCHITIS [None]
  - BRONCHITIS CHRONIC [None]
  - DIABETES MELLITUS [None]
  - HYPERTENSION [None]
  - MAJOR DEPRESSION [None]
  - MIGRAINE [None]
  - MUSCLE SPASMS [None]
  - OBESITY [None]
  - SCHIZOAFFECTIVE DISORDER [None]
  - SINUSITIS [None]
  - SUICIDAL IDEATION [None]
  - SUICIDE ATTEMPT [None]
  - UPPER RESPIRATORY TRACT INFECTION [None]
